FAERS Safety Report 8323014-8 (Version None)
Quarter: 2012Q2

REPORT INFORMATION
  Report Type: 
  Country: None (occurrence: None)
  Receive Date: 20120430
  Receipt Date: 20120419
  Transmission Date: 20120825
  Serious: Yes (Hospitalization)
  Sender: FDA-Public Use
  Company Number: US-ELI_LILLY_AND_COMPANY-US201204007727

PATIENT
  Sex: Female

DRUGS (16)
  1. NEURONTIN [Concomitant]
     Dosage: 300 MG, TID
  2. NORVASC [Concomitant]
     Dosage: 4 DF, UNKNOWN
  3. IPRATROPIUM BROMIDE [Concomitant]
  4. FORTEO [Suspect]
     Indication: OSTEOPOROSIS
     Dosage: 20 UG, QD
     Route: 065
     Dates: start: 20100601
  5. FLEXERIL [Concomitant]
  6. CALCIUM [Concomitant]
     Dosage: UNK, WEEKLY (1/W)
  7. ACCOLATE [Concomitant]
  8. ZOLOFT [Concomitant]
  9. MAGARTE [Concomitant]
  10. ALBUTEROL [Concomitant]
  11. AGGRENOX [Concomitant]
     Dosage: 2 DF, QD
  12. CHOLESTEROL [Concomitant]
  13. ADVAIR DISKUS 100/50 [Concomitant]
  14. VITAMIN B-12 [Concomitant]
     Dosage: UNK, WEEKLY (1/W)
  15. ATIVAN [Concomitant]
  16. ZYRTEC [Concomitant]

REACTIONS (3)
  - BACTERIAL DISEASE CARRIER [None]
  - MALAISE [None]
  - PNEUMONIA [None]
